FAERS Safety Report 14256685 (Version 2)
Quarter: 2018Q1

REPORT INFORMATION
  Report Type: Spontaneous
  Country: US (occurrence: US)
  Receive Date: 20171206
  Receipt Date: 20180206
  Transmission Date: 20180508
  Serious: Yes (Hospitalization, Other)
  Sender: FDA-Public Use
  Company Number: US-PFIZER INC-2017519746

PATIENT
  Age: 66 Year
  Sex: Female
  Weight: 53 kg

DRUGS (2)
  1. IBRANCE [Suspect]
     Active Substance: PALBOCICLIB
     Indication: BREAST CANCER METASTATIC
     Dosage: 125 MG, CYCLIC, FOR 3 WEEKS ON THEN 1 WEEK OFF
     Route: 048
     Dates: end: 20171107
  2. IBRANCE [Suspect]
     Active Substance: PALBOCICLIB
     Dosage: UNK
     Route: 048

REACTIONS (8)
  - Deep vein thrombosis [Unknown]
  - Malignant pleural effusion [Unknown]
  - Cardiac failure acute [Unknown]
  - Acute respiratory failure [Unknown]
  - Pulmonary embolism [Unknown]
  - Asthenia [Unknown]
  - Product use issue [Unknown]
  - Dysphagia [Unknown]

NARRATIVE: CASE EVENT DATE: 20171107
